FAERS Safety Report 9543354 (Version 1)
Quarter: 2013Q3

REPORT INFORMATION
  Report Type: Spontaneous
  Country: US (occurrence: US)
  Receive Date: 20130923
  Receipt Date: 20130923
  Transmission Date: 20140515
  Serious: Yes (Other)
  Sender: FDA-Public Use
  Company Number: US-JNJFOC-20130909442

PATIENT
  Age: 39 Year
  Sex: Female

DRUGS (5)
  1. DOXORUBICIN [Suspect]
     Indication: EWING^S SARCOMA
     Route: 042
  2. VINCRISTINE [Suspect]
     Indication: EWING^S SARCOMA
     Route: 065
  3. CYCLOPHOSPHAMIDE [Suspect]
     Indication: EWING^S SARCOMA
     Route: 065
  4. ETOPOSIDE [Suspect]
     Indication: EWING^S SARCOMA
     Route: 065
  5. IFOSFAMIDE [Suspect]
     Indication: EWING^S SARCOMA
     Route: 065

REACTIONS (4)
  - Syncope [Unknown]
  - Anaemia [Unknown]
  - Febrile neutropenia [Unknown]
  - Diarrhoea [Unknown]
